FAERS Safety Report 15976838 (Version 1)
Quarter: 2019Q1

REPORT INFORMATION
  Report Type: Spontaneous
  Country: US (occurrence: US)
  Receive Date: 20190218
  Receipt Date: 20190218
  Transmission Date: 20190418
  Serious: Yes (Other)
  Sender: FDA-Public Use
  Company Number: US-LEXICON PHARMACEUTICALS, INC-19-1606-00180

PATIENT
  Age: 48 Year
  Sex: Female

DRUGS (1)
  1. TELOTRISTAT ETHYL [Suspect]
     Active Substance: TELOTRISTAT ETHYL
     Indication: CARCINOID TUMOUR
     Route: 048
     Dates: start: 20190205

REACTIONS (12)
  - Hepatic steatosis [Unknown]
  - Blood alkaline phosphatase increased [Unknown]
  - Off label use [Unknown]
  - Constipation [Unknown]
  - Blood sodium decreased [Unknown]
  - Pulmonary mass [Unknown]
  - Blood glucose increased [Unknown]
  - White blood cell count increased [Unknown]
  - Carbon dioxide decreased [Unknown]
  - Weight decreased [Unknown]
  - Headache [Unknown]
  - Fatigue [Unknown]

NARRATIVE: CASE EVENT DATE: 20190205
